FAERS Safety Report 23460595 (Version 1)
Quarter: 2024Q1

REPORT INFORMATION
  Report Type: Spontaneous
  Country: US (occurrence: US)
  Receive Date: 20240131
  Receipt Date: 20240131
  Transmission Date: 20240410
  Serious: No
  Sender: FDA-Public Use
  Company Number: US-UNITED THERAPEUTICS-UNT-2024-002341

PATIENT
  Sex: Male

DRUGS (4)
  1. TYVASO [Suspect]
     Active Substance: TREPROSTINIL
     Indication: Pulmonary hypertension
     Dosage: 12 ?G, QID (DOSE DECREASED)
  2. TYVASO [Suspect]
     Active Substance: TREPROSTINIL
     Dosage: UNK, Q4H (OVERDOSE)
  3. TYVASO [Suspect]
     Active Substance: TREPROSTINIL
     Dosage: UNK
  4. OXYGEN [Concomitant]
     Active Substance: OXYGEN
     Indication: Product used for unknown indication
     Dosage: UNK
     Route: 065

REACTIONS (6)
  - Dizziness [Unknown]
  - Cough [Unknown]
  - Chest pain [Unknown]
  - Back pain [Unknown]
  - Accidental overdose [Recovered/Resolved]
  - Device issue [Unknown]
